FAERS Safety Report 22623048 (Version 1)
Quarter: 2023Q2

REPORT INFORMATION
  Report Type: Spontaneous
  Country: US (occurrence: US)
  Receive Date: 20230621
  Receipt Date: 20230621
  Transmission Date: 20230722
  Serious: No
  Sender: FDA-Public Use
  Company Number: US-AMGEN-USASP2023106761

PATIENT
  Sex: Female

DRUGS (3)
  1. PROLIA [Suspect]
     Active Substance: DENOSUMAB
     Indication: Product used for unknown indication
     Dosage: UNK
     Route: 065
     Dates: start: 202305
  2. CALCIUM [Concomitant]
     Active Substance: CALCIUM
     Dosage: 100 MILLIGRAM. UNK
     Route: 048
  3. VITAMIN D [Concomitant]
     Active Substance: VITAMIN D NOS
     Dosage: 800 INTERNATIONAL UNIT, UNK
     Route: 048

REACTIONS (1)
  - Blood calcium decreased [Unknown]

NARRATIVE: CASE EVENT DATE: 20230101
